FAERS Safety Report 4893657-2 (Version None)
Quarter: 2005Q4

REPORT INFORMATION
  Report Type: 
  Country: None (occurrence: None)
  Receive Date: 20051223
  Receipt Date: 20050920
  Transmission Date: 20060501
  Serious: No
  Sender: FDA-Public Use
  Company Number: 2005PV002267

PATIENT
  Age: 57 Year
  Sex: Female
  Weight: 99.7913 kg

DRUGS (4)
  1. SYMLIN [Suspect]
     Indication: DIABETES MELLITUS
     Dosage: 30 MCG;BID;SC ; 66 MCG;BID;SC
     Route: 058
     Dates: start: 20050811, end: 20050814
  2. SYMLIN [Suspect]
     Indication: DIABETES MELLITUS
     Dosage: 30 MCG;BID;SC ; 66 MCG;BID;SC
     Route: 058
     Dates: start: 20050815, end: 20050901
  3. INSULIN [Concomitant]
  4. NPH INSULIN [Concomitant]

REACTIONS (5)
  - ANOREXIA [None]
  - BLOOD GLUCOSE ABNORMAL [None]
  - BLOOD GLUCOSE INCREASED [None]
  - GASTROOESOPHAGEAL REFLUX DISEASE [None]
  - NAUSEA [None]
